FAERS Safety Report 23083057 (Version 2)
Quarter: 2023Q4

REPORT INFORMATION
  Report Type: Report from Study
  Country: GB (occurrence: GB)
  Receive Date: 20231019
  Receipt Date: 20231029
  Transmission Date: 20240109
  Serious: Yes (Other)
  Sender: FDA-Public Use
  Company Number: GB-GILEAD-2023-0638643

PATIENT
  Age: 74 Year
  Sex: Male

DRUGS (3)
  1. EMTRICITABINE\TENOFOVIR [Suspect]
     Active Substance: EMTRICITABINE\TENOFOVIR
     Indication: HIV infection
     Route: 065
  2. DARUNAVIR [Concomitant]
     Active Substance: DARUNAVIR
  3. DOLUTEGRAVIR [Concomitant]
     Active Substance: DOLUTEGRAVIR

REACTIONS (1)
  - CSF HIV escape syndrome [Unknown]
